FAERS Safety Report 10190865 (Version 1)
Quarter: 2014Q2

REPORT INFORMATION
  Report Type: Spontaneous
  Country: ES (occurrence: ES)
  Receive Date: 20140523
  Receipt Date: 20140523
  Transmission Date: 20141212
  Serious: Yes (Death, Other)
  Sender: FDA-Public Use
  Company Number: ES-ALEXION PHARMACEUTICALS INC.-A201401947

PATIENT
  Sex: 0

DRUGS (2)
  1. SOLIRIS 300MG [Suspect]
     Indication: PAROXYSMAL NOCTURNAL HAEMOGLOBINURIA
     Dosage: 900 MG, Q2W
     Route: 042
  2. CIPROFLOXACIN [Concomitant]
     Indication: PROPHYLAXIS
     Dosage: 500 MG, QD
     Route: 048
     Dates: start: 2013

REACTIONS (8)
  - Renal failure acute [Recovered/Resolved]
  - Escherichia infection [Recovered/Resolved]
  - Perihepatic abscess [Recovered/Resolved]
  - Hepatitis [Recovered/Resolved]
  - Cytomegalovirus infection [Recovered/Resolved]
  - Haemolysis [Recovered/Resolved]
  - Lymphoma [Fatal]
  - Peritoneal haemorrhage [Recovered/Resolved]
